FAERS Safety Report 9535866 (Version 1)
Quarter: 2013Q2

REPORT INFORMATION
  Report Type: Spontaneous
  Country: US (occurrence: None)
  Receive Date: 20130507
  Receipt Date: 20130507
  Transmission Date: 20140414
  Serious: No
  Sender: FDA-Public Use
  Company Number: PHEH0213US004042

PATIENT
  Age: 54 Year
  Sex: Female
  Weight: 57.61 kg

DRUGS (11)
  1. AFINITOR (RAD) [Suspect]
     Route: 048
     Dates: start: 20130204
  2. ARIMIDEX (ANASTROZOLE) [Concomitant]
  3. FLOVENT (FLUTICASONE PROPIONATE) [Concomitant]
  4. PROAIR HFA (SALBUTAMOL SULFATE) [Concomitant]
  5. WOMEN^S MULTI (ASCORBIC ACID, BETACAROTENE, BIOTIN, CALCIUM AMINO ACID CHELATE, CALCIUM PANTOTHENATE, CHROMIUM AMINO ACID CHELATE, COPPER AMINO ACID CHELATE, CYANOCOBALAMIN, EQUISETUM ARVENSE STEM, FERROUS FUMARATE, FOLIC ACID, LAMINARIA DIGITATA POWDER, MAGNESIUM OXIDE, MANGANESE AMINO ACID CHELATE, NICOTINAMIDE, OENOTHERA BIENNIS OIL, POTASSIUM AMINO ACID CHELATE, PYRIDOXINE HYDROCHLORIDE, RIBOFLAVIN, SELENIUM AMINO ACID CHELATE, THIAMINE MONONITRATE, ZINC AMINO ACID CHELATE) [Concomitant]
  6. IRON [Concomitant]
  7. FUROSEMIDE [Concomitant]
  8. IBUPROFEN [Concomitant]
  9. CALCIUM [Concomitant]
  10. MAGNESIUM [Concomitant]
  11. ZOFRAN (ONDANSETRON HYDROCHLORIDE) [Concomitant]

REACTIONS (6)
  - Neck pain [None]
  - Ear pain [None]
  - Bone pain [None]
  - Musculoskeletal stiffness [None]
  - Cough [None]
  - Dyspnoea [None]
